FAERS Safety Report 12794435 (Version 3)
Quarter: 2017Q2

REPORT INFORMATION
  Report Type: Spontaneous
  Country: US (occurrence: US)
  Receive Date: 20160929
  Receipt Date: 20170512
  Transmission Date: 20170830
  Serious: No
  Sender: FDA-Public Use
  Company Number: US-JNJFOC-20160907181

PATIENT
  Sex: Male

DRUGS (7)
  1. RISPERDAL [Suspect]
     Active Substance: RISPERIDONE
     Indication: SCHIZOPHRENIA
     Route: 048
  2. RISPERDAL [Suspect]
     Active Substance: RISPERIDONE
     Indication: SCHIZOPHRENIA
     Route: 048
     Dates: end: 2009
  3. RISPERDAL [Suspect]
     Active Substance: RISPERIDONE
     Indication: SCHIZOPHRENIA
     Route: 048
     Dates: start: 1995
  4. RISPERDAL [Suspect]
     Active Substance: RISPERIDONE
     Indication: RESTLESSNESS
     Route: 048
     Dates: end: 2009
  5. INVEGA [Suspect]
     Active Substance: PALIPERIDONE
     Indication: RESTLESSNESS
     Dosage: 4 TIMES A DAY
     Route: 048
     Dates: start: 1995
  6. INVEGA [Suspect]
     Active Substance: PALIPERIDONE
     Indication: RESTLESSNESS
     Route: 048
     Dates: end: 2009
  7. RISPERDAL [Suspect]
     Active Substance: RISPERIDONE
     Indication: RESTLESSNESS
     Route: 048
     Dates: start: 1995

REACTIONS (5)
  - Gynaecomastia [Unknown]
  - Off label use [Unknown]
  - Abnormal weight gain [Unknown]
  - Product use in unapproved indication [Unknown]
  - Galactorrhoea [Unknown]

NARRATIVE: CASE EVENT DATE: 1995
